FAERS Safety Report 20855121 (Version 1)
Quarter: 2022Q2

REPORT INFORMATION
  Report Type: Spontaneous
  Country: US (occurrence: None)
  Receive Date: 20220519
  Receipt Date: 20220519
  Transmission Date: 20220720
  Serious: Yes (Hospitalization)
  Sender: FDA-Public Use
  Company Number: None

PATIENT
  Age: 87 Year
  Sex: Female
  Weight: 58 kg

DRUGS (1)
  1. ALTEPLASE [Suspect]
     Active Substance: ALTEPLASE
     Indication: Ischaemic stroke
     Dosage: OTHER FREQUENCY : ONCE;?
     Route: 042
     Dates: start: 20220320, end: 20220320

REACTIONS (10)
  - Cerebral haemorrhage [None]
  - Disorientation [None]
  - Dysarthria [None]
  - Cerebral infarction [None]
  - Subarachnoid haemorrhage [None]
  - Cerebral mass effect [None]
  - Vascular occlusion [None]
  - Cerebral atrophy [None]
  - Cerebral haemorrhage [None]
  - Cardiogenic shock [None]

NARRATIVE: CASE EVENT DATE: 20220321
